FAERS Safety Report 16884915 (Version 1)
Quarter: 2019Q4

REPORT INFORMATION
  Report Type: Spontaneous
  Country: US (occurrence: US)
  Receive Date: 20190808
  Receipt Date: 20190808
  Transmission Date: 20200122
  Serious: No
  Sender: FDA-Public Use
  Company Number: None

PATIENT
  Sex: Female

DRUGS (1)
  1. HUMIRA [Suspect]
     Active Substance: ADALIMUMAB
     Indication: COLITIS ULCERATIVE
     Route: 058
     Dates: start: 20190618

REACTIONS (8)
  - Flatulence [None]
  - Cough [None]
  - Dysphonia [None]
  - Dyspnoea [None]
  - Hyperhidrosis [None]
  - Confusional state [None]
  - Heart rate increased [None]
  - Headache [None]
